FAERS Safety Report 19890886 (Version 2)
Quarter: 2021Q3

REPORT INFORMATION
  Report Type: Spontaneous
  Country: US (occurrence: US)
  Receive Date: 20210928
  Receipt Date: 20210930
  Transmission Date: 20211014
  Serious: Yes (Hospitalization)
  Sender: FDA-Public Use
  Company Number: US-GW PHARMA-202109USGW04564

PATIENT

DRUGS (2)
  1. EPIDIOLEX [Suspect]
     Active Substance: CANNABIDIOL
     Indication: EPILEPSY
     Dosage: 260 MILLIGRAM, FREQUENCY NOT REPORTED
     Route: 048
     Dates: start: 20210114, end: 2021
  2. EPIDIOLEX [Suspect]
     Active Substance: CANNABIDIOL
     Indication: SEIZURE
     Dosage: 130 MILLIGRAM, FREQUENCY NOT REPORTED
     Route: 048
     Dates: start: 2021

REACTIONS (3)
  - Hospitalisation [Not Recovered/Not Resolved]
  - Seizure [Recovered/Resolved]
  - Product supply issue [Unknown]

NARRATIVE: CASE EVENT DATE: 2021
